FAERS Safety Report 19997387 (Version 1)
Quarter: 2021Q4

REPORT INFORMATION
  Report Type: Spontaneous
  Country: US (occurrence: US)
  Receive Date: 20211025
  Receipt Date: 20211025
  Transmission Date: 20220304
  Serious: No
  Sender: FDA-Public Use
  Company Number: US-GLAXOSMITHKLINE-USCH2021073887

PATIENT

DRUGS (2)
  1. ADVIL [Suspect]
     Active Substance: IBUPROFEN
     Indication: Headache
     Dosage: 3 DF
  2. ADVIL [Suspect]
     Active Substance: IBUPROFEN
     Indication: Muscle spasms

REACTIONS (1)
  - Incorrect dose administered [Unknown]
